FAERS Safety Report 7179957-4 (Version None)
Quarter: 2010Q4

REPORT INFORMATION
  Report Type: 
  Country: None (occurrence: None)
  Receive Date: 20101208
  Receipt Date: 20101123
  Transmission Date: 20110411
  Serious: Yes (Hospitalization)
  Sender: FDA-Public Use
  Company Number: UTC-002677

PATIENT
  Age: 69 Year
  Sex: Male
  Weight: 68 kg

DRUGS (3)
  1. REMODULIN [Suspect]
     Dosage: SUBCUTANEOUS
     Route: 058
  2. LETAIRIS (AMBRISENTAN) [Concomitant]
  3. ADCIRCA [Concomitant]

REACTIONS (3)
  - INFECTION [None]
  - PAIN [None]
  - PRURITUS [None]
